FAERS Safety Report 24430010 (Version 1)
Quarter: 2024Q4

REPORT INFORMATION
  Report Type: Spontaneous
  Country: US (occurrence: US)
  Receive Date: 20241012
  Receipt Date: 20241012
  Transmission Date: 20250115
  Serious: Yes (Hospitalization, Other)
  Sender: DR REDDYS
  Company Number: US-DRL-USA-LIT/USA/24/0014812

PATIENT
  Age: 26 Year
  Sex: Female

DRUGS (3)
  1. DAPTOMYCIN [Suspect]
     Active Substance: DAPTOMYCIN
     Indication: Staphylococcal bacteraemia
  2. VANCOMYCIN [Suspect]
     Active Substance: VANCOMYCIN
     Indication: Staphylococcal bacteraemia
  3. RITUXIMAB [Concomitant]
     Active Substance: RITUXIMAB
     Indication: Multiple sclerosis

REACTIONS (2)
  - Condition aggravated [Unknown]
  - Drug ineffective [Unknown]
